FAERS Safety Report 24157197 (Version 2)
Quarter: 2024Q4

REPORT INFORMATION
  Report Type: Spontaneous
  Country: US (occurrence: US)
  Receive Date: 20240731
  Receipt Date: 20241110
  Transmission Date: 20250115
  Serious: No
  Sender: SANOFI AVENTIS
  Company Number: US-SA-SAC20240724001518

PATIENT
  Age: 44 Year
  Sex: Male

DRUGS (1)
  1. DUPIXENT [Suspect]
     Active Substance: DUPILUMAB
     Indication: Dermatitis atopic
     Dosage: 300 MG, QOW
     Route: 058

REACTIONS (7)
  - Injection site pain [Unknown]
  - Product preparation error [Unknown]
  - Dry skin [Recovering/Resolving]
  - Tendonitis [Unknown]
  - Pruritus [Recovering/Resolving]
  - Skin exfoliation [Unknown]
  - Eczema [Recovering/Resolving]
